FAERS Safety Report 9527611 (Version 1)
Quarter: 2013Q1

REPORT INFORMATION
  Report Type: Spontaneous
  Country: US (occurrence: None)
  Receive Date: 20130314
  Receipt Date: 20130314
  Transmission Date: 20140127
  Serious: No
  Sender: FDA-Public Use
  Company Number: 1211USA006010

PATIENT
  Age: 64 Year
  Sex: Female
  Weight: 72.6 kg

DRUGS (3)
  1. VICTRELIS [Suspect]
     Indication: HEPATITIS C
     Route: 048
     Dates: start: 201210
  2. PEGASYS [Suspect]
     Dates: start: 201209
  3. RIBASPHERE (RIBAVIRIN) [Suspect]
     Dates: start: 201209

REACTIONS (1)
  - Influenza like illness [None]
